FAERS Safety Report 23593485 (Version 1)
Quarter: 2024Q1

REPORT INFORMATION
  Report Type: Report from Study
  Country: US (occurrence: US)
  Receive Date: 20240304
  Receipt Date: 20240304
  Transmission Date: 20240410
  Serious: Yes (Other)
  Sender: FDA-Public Use
  Company Number: US-GILEAD-2024-0663909

PATIENT
  Sex: Female

DRUGS (2)
  1. AMBRISENTAN [Suspect]
     Active Substance: AMBRISENTAN
     Indication: Pulmonary hypertension
     Dosage: 10 MG, QD
     Route: 065
     Dates: start: 20190903
  2. ADCIRCA [Concomitant]
     Active Substance: TADALAFIL

REACTIONS (8)
  - Ascites [Unknown]
  - Cough [Unknown]
  - Exercise tolerance decreased [Unknown]
  - Dizziness [Unknown]
  - Dyspnoea exertional [Unknown]
  - Oedema [Unknown]
  - Weight decreased [Unknown]
  - Fatigue [Unknown]
